FAERS Safety Report 6438866-6 (Version None)
Quarter: 2009Q4

REPORT INFORMATION
  Report Type: 
  Country: None (occurrence: None)
  Receive Date: 20091113
  Receipt Date: 20091104
  Transmission Date: 20100525
  Serious: Yes (Hospitalization)
  Sender: FDA-Public Use
  Company Number: US-ASTRAZENECA-2009SE24585

PATIENT
  Age: 62 Year
  Sex: Female

DRUGS (4)
  1. SEROQUEL XR [Suspect]
     Route: 048
  2. CUMADIN [Concomitant]
  3. XANAX [Concomitant]
  4. AMBIEN [Concomitant]

REACTIONS (3)
  - BACK INJURY [None]
  - CEREBRAL HAEMORRHAGE [None]
  - FALL [None]
